FAERS Safety Report 13964988 (Version 1)
Quarter: 2017Q3

REPORT INFORMATION
  Report Type: Spontaneous
  Country: US (occurrence: US)
  Receive Date: 20170913
  Receipt Date: 20170913
  Transmission Date: 20171128
  Serious: Yes (Other)
  Sender: FDA-Public Use
  Company Number: US-JNJFOC-20170807258

PATIENT
  Age: 77 Year
  Sex: Male

DRUGS (2)
  1. XTANDI [Suspect]
     Active Substance: ENZALUTAMIDE
     Indication: PROSTATE CANCER METASTATIC
     Route: 065
     Dates: start: 20170624
  2. ZYTIGA [Suspect]
     Active Substance: ABIRATERONE ACETATE
     Indication: PROSTATE CANCER METASTATIC
     Route: 048

REACTIONS (11)
  - Constipation [Unknown]
  - Hip fracture [Unknown]
  - Drug ineffective [Unknown]
  - Memory impairment [Unknown]
  - Fatigue [Unknown]
  - Prostate cancer metastatic [Unknown]
  - Arthralgia [Unknown]
  - Hypersomnia [Unknown]
  - Diarrhoea [Unknown]
  - Hot flush [Unknown]
  - Oedema peripheral [Unknown]
